FAERS Safety Report 5832865-0 (Version None)
Quarter: 2008Q3

REPORT INFORMATION
  Report Type: 
  Country: None (occurrence: None)
  Receive Date: 20080730
  Receipt Date: 20080617
  Transmission Date: 20090109
  Serious: Yes (Disabling)
  Sender: FDA-Public Use
  Company Number: 001#1#2008-00401

PATIENT
  Age: 56 Year
  Sex: Female

DRUGS (2)
  1. NEUPRO [Suspect]
     Indication: PARKINSON'S DISEASE
     Dosage: 10 MG/24H (10 MG/24H 1 IN 1 DAY(S)) TRANSDERMAL
     Route: 062
     Dates: start: 20070727
  2. CANDESARTAN CILEXETIL [Concomitant]

REACTIONS (2)
  - PIGMENTATION DISORDER [None]
  - SEBORRHOEIC KERATOSIS [None]
